FAERS Safety Report 21465197 (Version 1)
Quarter: 2022Q4

REPORT INFORMATION
  Report Type: Spontaneous
  Country: US (occurrence: US)
  Receive Date: 20221017
  Receipt Date: 20221017
  Transmission Date: 20230113
  Serious: No
  Sender: FDA-Public Use
  Company Number: US-TEVA-2022-US-2082560

PATIENT
  Sex: Female

DRUGS (1)
  1. AJOVY [Suspect]
     Active Substance: FREMANEZUMAB-VFRM
     Indication: Migraine
     Dosage: DOSAGE : 1.5 ML
     Route: 065

REACTIONS (3)
  - Injection site urticaria [Unknown]
  - Device issue [Unknown]
  - Incorrect dose administered by device [Unknown]
